FAERS Safety Report 11729215 (Version 1)
Quarter: 2015Q4

REPORT INFORMATION
  Report Type: Spontaneous
  Country: US (occurrence: US)
  Receive Date: 20151112
  Receipt Date: 20151112
  Transmission Date: 20160304
  Serious: No
  Sender: FDA-Public Use
  Company Number: US-PFIZER INC-2015372485

PATIENT
  Sex: Male

DRUGS (1)
  1. NEURONTIN [Suspect]
     Active Substance: GABAPENTIN
     Indication: DEPRESSION
     Dosage: UNK

REACTIONS (3)
  - Tardive dyskinesia [Unknown]
  - Drug ineffective [Unknown]
  - Depression [Unknown]
